FAERS Safety Report 4625859-4 (Version None)
Quarter: 2005Q2

REPORT INFORMATION
  Report Type: 
  Country: None (occurrence: None)
  Receive Date: 20050404
  Receipt Date: 20050325
  Transmission Date: 20051028
  Serious: Yes (Hospitalization)
  Sender: FDA-Public Use
  Company Number: 200511085FR

PATIENT
  Age: 84 Year
  Sex: Male

DRUGS (7)
  1. BIRODOGYL [Suspect]
     Indication: TOOTH INFECTION
     Route: 048
     Dates: start: 20050201, end: 20050302
  2. AMIODARONE HCL [Concomitant]
  3. TAREG [Concomitant]
  4. SEROPRAM [Concomitant]
  5. ZYLORIC [Concomitant]
  6. DI-ANTALVIC [Concomitant]
  7. PIASCLEDINE [Concomitant]

REACTIONS (5)
  - CARDIAC FAILURE [None]
  - CONFUSIONAL STATE [None]
  - DYSPNOEA [None]
  - HALLUCINATION [None]
  - OEDEMA PERIPHERAL [None]
